FAERS Safety Report 8371967-4 (Version None)
Quarter: 2012Q2

REPORT INFORMATION
  Report Type: 
  Country: None (occurrence: None)
  Receive Date: 20120518
  Receipt Date: 20120516
  Transmission Date: 20120825
  Serious: Yes (Hospitalization, Other)
  Sender: FDA-Public Use
  Company Number: BR-MERCK-1205BRA00050

PATIENT
  Sex: Male
  Weight: 75 kg

DRUGS (3)
  1. LATANOPROST [Concomitant]
     Indication: GLAUCOMA
     Route: 047
     Dates: start: 20030101
  2. COSOPT [Suspect]
     Indication: GLAUCOMA
     Route: 047
     Dates: start: 20030101
  3. BRIMONIDINE TARTRATE [Concomitant]
     Indication: GLAUCOMA
     Route: 047
     Dates: start: 20030101

REACTIONS (3)
  - HERNIA REPAIR [None]
  - INTRAOCULAR PRESSURE INCREASED [None]
  - CARDIAC DISORDER [None]
